FAERS Safety Report 4393937-3 (Version None)
Quarter: 2004Q3

REPORT INFORMATION
  Report Type: 
  Country: None (occurrence: None)
  Receive Date: 20040702
  Receipt Date: 20040618
  Transmission Date: 20050211
  Serious: Yes (Life-Threatening, Hospitalization)
  Sender: FDA-Public Use
  Company Number: 237478

PATIENT
  Age: 63 Year
  Sex: Male

DRUGS (4)
  1. NOVORAPID CHU (INSULIN ASPART) SOLUTION FOR INJECTION, 100U/ML [Suspect]
     Indication: DIABETES MELLITUS INSULIN-DEPENDENT
     Dosage: 48 IU, QD, SUBCUTANEOUS
     Route: 058
     Dates: start: 20031106, end: 20031222
  2. PENFIL N CHU (INSULIN HUMAN) SUSPENSION FOR INJECTION [Concomitant]
  3. BASEN (VOGLIBOSE) [Concomitant]
  4. METHYCOBAL (MECOBALAMIN) [Concomitant]

REACTIONS (6)
  - AMNESIA [None]
  - CHILLBLAINS [None]
  - FALL [None]
  - HYPOGLYCAEMIC COMA [None]
  - HYPOTHERMIA [None]
  - SKIN DISCOLOURATION [None]
